FAERS Safety Report 12756487 (Version 2)
Quarter: 2016Q4

REPORT INFORMATION
  Report Type: Spontaneous
  Country: AR (occurrence: AR)
  Receive Date: 20160917
  Receipt Date: 20161026
  Transmission Date: 20170207
  Serious: Yes (Other)
  Sender: FDA-Public Use
  Company Number: AR-AMGEN-ARGSP2016123896

PATIENT
  Age: 53 Year
  Sex: Female

DRUGS (1)
  1. ENBREL [Suspect]
     Active Substance: ETANERCEPT
     Indication: RHEUMATOID ARTHRITIS
     Dosage: UNK
     Route: 065

REACTIONS (3)
  - Abasia [Not Recovered/Not Resolved]
  - Arthralgia [Unknown]
  - Infection [Not Recovered/Not Resolved]

NARRATIVE: CASE EVENT DATE: 2010
